FAERS Safety Report 12665196 (Version 1)
Quarter: 2016Q3

REPORT INFORMATION
  Report Type: Spontaneous
  Country: JP (occurrence: JP)
  Receive Date: 20160818
  Receipt Date: 20160818
  Transmission Date: 20161109
  Serious: Yes (Hospitalization)
  Sender: FDA-Public Use
  Company Number: JP-PFIZER INC-2016390560

PATIENT
  Age: 95 Year
  Sex: Female

DRUGS (5)
  1. LYRICA [Suspect]
     Active Substance: PREGABALIN
     Indication: POST HERPETIC NEURALGIA
     Dosage: 25 MG, DAILY
     Route: 048
     Dates: start: 201607
  2. NEOXY TAPE [Concomitant]
     Dosage: UNK
     Route: 061
     Dates: start: 20160801
  3. PARIET [Concomitant]
     Active Substance: RABEPRAZOLE SODIUM
     Dosage: UNK
     Route: 048
     Dates: start: 20160801
  4. LYRICA [Suspect]
     Active Substance: PREGABALIN
     Dosage: 50 MG, DAILY
     Route: 048
  5. LYRICA [Suspect]
     Active Substance: PREGABALIN
     Dosage: 75 MG, DAILY
     Route: 048
     Dates: start: 20160801

REACTIONS (2)
  - Cerebrovascular accident [Recovered/Resolved]
  - Disorientation [Recovered/Resolved]
